FAERS Safety Report 20991851 (Version 1)
Quarter: 2022Q2

REPORT INFORMATION
  Report Type: Spontaneous
  Country: FR (occurrence: FR)
  Receive Date: 20220622
  Receipt Date: 20220622
  Transmission Date: 20220721
  Serious: Yes (Other)
  Sender: FDA-Public Use
  Company Number: FR-SHIONOGI, INC-2022000509

PATIENT
  Age: 56 Year
  Sex: Male

DRUGS (7)
  1. FETROJA [Suspect]
     Active Substance: CEFIDEROCOL SULFATE TOSYLATE
     Indication: Pseudomonas infection
     Dosage: 2 G, TID
     Route: 042
  2. FETROJA [Suspect]
     Active Substance: CEFIDEROCOL SULFATE TOSYLATE
     Indication: Pseudomonal bacteraemia
     Dosage: UNK
     Route: 042
  3. COLISTIN [Concomitant]
     Active Substance: COLISTIN
     Indication: Pseudomonas infection
     Dosage: UNK
     Route: 065
  4. COLISTIN [Concomitant]
     Active Substance: COLISTIN
     Indication: Pseudomonal bacteraemia
     Dosage: UNK
     Route: 065
  5. FLUDARABINE [Concomitant]
     Active Substance: FLUDARABINE PHOSPHATE
     Indication: Myelodysplastic syndrome
     Route: 065
  6. BUSULFAN [Concomitant]
     Active Substance: BUSULFAN
     Indication: Myelodysplastic syndrome
     Route: 065
  7. AVIBACTAM SODIUM\CEFTAZIDIME [Concomitant]
     Active Substance: AVIBACTAM SODIUM\CEFTAZIDIME
     Indication: Antibiotic therapy
     Dosage: 10 DAYS
     Route: 065

REACTIONS (1)
  - Acute kidney injury [Recovered/Resolved]
